FAERS Safety Report 9174368 (Version 1)
Quarter: 2013Q1

REPORT INFORMATION
  Report Type: Spontaneous
  Country: MX (occurrence: MX)
  Receive Date: 20130320
  Receipt Date: 20130320
  Transmission Date: 20140127
  Serious: Yes (Death)
  Sender: FDA-Public Use
  Company Number: PHHY2013MX026938

PATIENT
  Age: 88 Year
  Sex: Male

DRUGS (2)
  1. EXELON PATCH [Suspect]
     Indication: DEMENTIA ALZHEIMER^S TYPE
     Dosage: 9.5 MG (10CM2) DAILY
     Route: 062
  2. CO-DIOVAN [Suspect]
     Dosage: 2 UKN, UNK
     Dates: start: 201002

REACTIONS (1)
  - Death [Fatal]
